FAERS Safety Report 14021374 (Version 1)
Quarter: 2017Q3

REPORT INFORMATION
  Report Type: Spontaneous
  Country: TR (occurrence: TR)
  Receive Date: 20170928
  Receipt Date: 20170928
  Transmission Date: 20171128
  Serious: Yes (Hospitalization)
  Sender: FDA-Public Use
  Company Number: PHHY2017TR140459

PATIENT
  Age: 38 Year
  Sex: Female

DRUGS (1)
  1. SIGNIFOR [Suspect]
     Active Substance: PASIREOTIDE
     Indication: CUSHING^S SYNDROME
     Dosage: 0.9 UNK, BID
     Route: 058
     Dates: start: 20161128, end: 20170824

REACTIONS (4)
  - Vomiting [Unknown]
  - Cholelithiasis [Not Recovered/Not Resolved]
  - Nausea [Unknown]
  - Hyperglycaemia [Not Recovered/Not Resolved]

NARRATIVE: CASE EVENT DATE: 20161128
